FAERS Safety Report 23034304 (Version 3)
Quarter: 2023Q4

REPORT INFORMATION
  Report Type: Spontaneous
  Country: JP (occurrence: None)
  Receive Date: 20231005
  Receipt Date: 20231030
  Transmission Date: 20240109
  Serious: Yes (Other)
  Sender: FDA-Public Use
  Company Number: 2023A194542

PATIENT
  Age: 75 Year
  Sex: Male

DRUGS (6)
  1. IMFINZI [Suspect]
     Active Substance: DURVALUMAB
     Indication: Bile duct cancer
     Route: 041
     Dates: start: 20230804, end: 20230804
  2. GEMCITABINE HYDROCHLORIDE [Suspect]
     Active Substance: GEMCITABINE HYDROCHLORIDE
     Indication: Bile duct cancer
     Dates: start: 20230804, end: 20230804
  3. CISPLATIN [Suspect]
     Active Substance: CISPLATIN
     Indication: Bile duct cancer
     Dates: start: 20230804, end: 20230804
  4. PREDNISOLONE [Concomitant]
     Active Substance: PREDNISOLONE
  5. BETAMETHASONE [Concomitant]
     Active Substance: BETAMETHASONE
     Route: 048
     Dates: start: 20230814, end: 20230821
  6. BETAMETHASONE [Concomitant]
     Active Substance: BETAMETHASONE
     Route: 048
     Dates: start: 20230822, end: 20230901

REACTIONS (4)
  - Portal vein thrombosis [Unknown]
  - Splenic vein thrombosis [Unknown]
  - Hepatic function abnormal [Recovering/Resolving]
  - Renal atrophy [Unknown]

NARRATIVE: CASE EVENT DATE: 20230821
